FAERS Safety Report 20032048 (Version 2)
Quarter: 2021Q4

REPORT INFORMATION
  Report Type: Report from Study
  Country: US (occurrence: US)
  Receive Date: 20211103
  Receipt Date: 20211117
  Transmission Date: 20220303
  Serious: Yes (Hospitalization)
  Sender: FDA-Public Use
  Company Number: US-PFIZER INC-202101432099

PATIENT
  Age: 43 Year
  Sex: Female
  Weight: 104 kg

DRUGS (28)
  1. TALAZOPARIB [Suspect]
     Active Substance: TALAZOPARIB
     Indication: Breast cancer
     Dosage: 0.75 MG, DAILY
     Route: 048
     Dates: start: 20201001, end: 20211015
  2. GEDATOLISIB [Suspect]
     Active Substance: GEDATOLISIB
     Indication: Breast cancer
     Dosage: 180 MG, WEEKLY
     Dates: start: 20201001, end: 20211012
  3. TYLENOL [Concomitant]
     Active Substance: ACETAMINOPHEN
     Indication: Pain
     Dosage: 650 MG, PRN
     Route: 048
     Dates: start: 1996, end: 20201125
  4. MOTRIN [Concomitant]
     Active Substance: IBUPROFEN
     Indication: Pain
     Dosage: 400 MG, PRN
     Route: 048
     Dates: start: 1996
  5. MOTRIN [Concomitant]
     Active Substance: IBUPROFEN
     Indication: Headache
  6. MELATONIN [Concomitant]
     Active Substance: MELATONIN
     Indication: Insomnia
     Dosage: 1 MG, PRN
     Route: 048
     Dates: start: 20200928
  7. ZOMETA [Concomitant]
     Active Substance: ZOLEDRONIC ACID
     Indication: Supportive care
     Dosage: 4 MG, Q 6 MONTH
     Route: 042
     Dates: start: 20170526, end: 20210406
  8. ROZEREM [Concomitant]
     Active Substance: RAMELTEON
     Indication: Insomnia
     Dosage: 8 MG, PRN
     Route: 048
     Dates: start: 20200612, end: 20200907
  9. DEXAMETHASONE [Concomitant]
     Active Substance: DEXAMETHASONE
     Indication: Prophylaxis
     Dosage: 10 ML, 4X/DAY
     Dates: start: 20201001, end: 20201105
  10. IMODIUM A-D [Concomitant]
     Active Substance: LOPERAMIDE HYDROCHLORIDE
     Indication: Diarrhoea
     Dosage: 2 MG, PRN
     Route: 048
     Dates: start: 20201001, end: 202103
  11. ZOFRAN [Concomitant]
     Active Substance: ONDANSETRON HYDROCHLORIDE
     Indication: Nausea
     Dosage: 8 MG, Q8HR, PRN
     Route: 048
     Dates: start: 20201001, end: 20210406
  12. ZOFRAN [Concomitant]
     Active Substance: ONDANSETRON HYDROCHLORIDE
     Indication: Vomiting
  13. PROCHLORPERAZINE MALEATE [Concomitant]
     Active Substance: PROCHLORPERAZINE MALEATE
     Indication: Nausea
     Dosage: 10 MG, Q6HR, PRN
     Route: 048
     Dates: start: 20201001
  14. PROCHLORPERAZINE MALEATE [Concomitant]
     Active Substance: PROCHLORPERAZINE MALEATE
     Indication: Vomiting
  15. INFLUENZA VIRUS VACCINE [Concomitant]
     Active Substance: INFLUENZA VIRUS VACCINE
     Indication: Prophylaxis
     Dosage: 0.5 ML, ONCE
     Route: 030
     Dates: start: 20201001, end: 20201001
  16. DEXAMETHASONE [Concomitant]
     Active Substance: DEXAMETHASONE
     Indication: Stomatitis
     Dosage: 10 ML, 4X/DAY
     Dates: start: 20201109
  17. ALKA-SELTZER [Concomitant]
     Active Substance: ANHYDROUS CITRIC ACID\ASPIRIN\SODIUM BICARBONATE
     Indication: Dyspepsia
     Dosage: 750 MG, PRN
     Route: 048
     Dates: start: 202011, end: 20201208
  18. PEPTO-BISMOL [Concomitant]
     Active Substance: BISMUTH SUBSALICYLATE
     Indication: Dyspepsia
     Dosage: 30 ML, QD
     Route: 048
     Dates: start: 20201208, end: 20201222
  19. PANTOPRAZOLE [Concomitant]
     Active Substance: PANTOPRAZOLE
     Indication: Dyspepsia
     Dosage: 20 MG, BID
     Route: 048
     Dates: start: 20201222
  20. GENTLE LAXATIVE [Concomitant]
     Active Substance: BISACODYL
     Indication: Constipation
     Dosage: 5 MG, PRN
     Route: 048
     Dates: start: 202103, end: 20210406
  21. SENNA S [Concomitant]
     Active Substance: DOCUSATE SODIUM\SENNA LEAF
     Indication: Constipation
     Dosage: 1-2 TABS BID, PRN
     Route: 048
     Dates: start: 20210319, end: 20210406
  22. CEFUROXIME [Concomitant]
     Active Substance: CEFUROXIME
     Indication: Upper respiratory tract infection
     Dosage: 500 MG, DAILY FOR 10 DAYS
     Route: 048
     Dates: start: 20210526, end: 20210604
  23. PREDNISONE [Concomitant]
     Active Substance: PREDNISONE
     Indication: Upper respiratory tract infection
     Dosage: 20 MG, 2 TABS FOR 2 DAYS, THEN 1 TAB FOR 4 DAYS THEN 1/2 HAB FOR 2 DAYS
     Route: 048
     Dates: start: 20210526, end: 20210602
  24. VICKS DAYQUIL [Concomitant]
     Active Substance: DEXTROMETHORPHAN HYDROBROMIDE\GUAIFENESIN
     Indication: Upper respiratory tract infection
     Dosage: AS DIRECTED PRN
     Route: 048
     Dates: start: 20210524, end: 20210525
  25. GUM RINCINOL P.R.N. [Concomitant]
     Indication: Stomatitis
     Dosage: 10 ML, PRN
     Route: 048
     Dates: start: 202106
  26. CEFTRIAXONE [Concomitant]
     Active Substance: CEFTRIAXONE
     Indication: Upper respiratory tract infection
     Dosage: 1 G, ONCE
     Route: 042
     Dates: start: 20211014, end: 20211014
  27. CEFEPIME [Concomitant]
     Active Substance: CEFEPIME HYDROCHLORIDE
     Indication: Upper respiratory tract infection
     Dosage: 2 G, ONCE
     Route: 042
     Dates: start: 20211015, end: 20211015
  28. CIPROFLOXACIN [Concomitant]
     Active Substance: CIPROFLOXACIN
     Indication: Upper respiratory tract infection
     Dosage: 500 MG, BID FOR 7 DAYS
     Route: 048
     Dates: start: 20211016, end: 20211021

REACTIONS (1)
  - Pneumonia [Recovered/Resolved]

NARRATIVE: CASE EVENT DATE: 20211021
